APPROVED DRUG PRODUCT: EMETE-CON
Active Ingredient: BENZQUINAMIDE HYDROCHLORIDE
Strength: EQ 100MG BASE
Dosage Form/Route: SUPPOSITORY;RECTAL
Application: N016818 | Product #006
Applicant: ROERIG DIV PFIZER INC
Approved: Approved Prior to Jan 1, 1982 | RLD: No | RS: No | Type: DISCN